FAERS Safety Report 17109618 (Version 1)
Quarter: 2019Q4

REPORT INFORMATION
  Report Type: Spontaneous
  Country: US (occurrence: US)
  Receive Date: 20191204
  Receipt Date: 20191204
  Transmission Date: 20200122
  Serious: No
  Sender: FDA-Public Use
  Company Number: US-SUN PHARMACEUTICAL INDUSTRIES LTD-2019R1-228617

PATIENT
  Sex: Female

DRUGS (1)
  1. GUANFACINE. [Suspect]
     Active Substance: GUANFACINE
     Indication: PRODUCT USED FOR UNKNOWN INDICATION
     Dosage: UNK
     Route: 048

REACTIONS (3)
  - Vomiting [Unknown]
  - Product solubility abnormal [Unknown]
  - Drug ineffective [Unknown]
